FAERS Safety Report 25524784 (Version 3)
Quarter: 2025Q3

REPORT INFORMATION
  Report Type: Spontaneous
  Country: CA (occurrence: CA)
  Receive Date: 20250707
  Receipt Date: 20250922
  Transmission Date: 20251021
  Serious: Yes (Hospitalization)
  Sender: INCYTE
  Company Number: CA-EVENT-003419

PATIENT
  Age: 38 Year

DRUGS (1)
  1. PEMAZYRE [Suspect]
     Active Substance: PEMIGATINIB
     Indication: Pancreatic carcinoma metastatic
     Dosage: 13.5 MILLIGRAM, QD (14 DAYS ON AND 7 DAYS OFF)

REACTIONS (2)
  - Pyrexia [Recovering/Resolving]
  - Off label use [Unknown]
